FAERS Safety Report 23435727 (Version 1)
Quarter: 2024Q1

REPORT INFORMATION
  Report Type: Report from Study
  Country: DE (occurrence: DE)
  Receive Date: 20240124
  Receipt Date: 20240124
  Transmission Date: 20240410
  Serious: Yes (Hospitalization)
  Sender: FDA-Public Use
  Company Number: DE-ABBVIE-5601102

PATIENT
  Age: 71 Year
  Sex: Male

DRUGS (2)
  1. CARBIDOPA\LEVODOPA [Suspect]
     Active Substance: CARBIDOPA\LEVODOPA
     Indication: Parkinson^s disease
     Dosage: MD: 3.0 ML, CRD: 5.4 ML/H, CRN: 4.7 ML/H, ED: 2 ML
     Route: 050
     Dates: start: 20181025
  2. CARBIDOPA\LEVODOPA [Suspect]
     Active Substance: CARBIDOPA\LEVODOPA
     Dosage: MAINTENANCE DOSE TO: 6.7ML/H, MAINTENANCE DOSE AT NIGHT TO: 5.8ML/H?DOSE INCREASED
     Route: 050

REACTIONS (4)
  - Arthralgia [Unknown]
  - Device issue [Not Recovered/Not Resolved]
  - Pain in extremity [Unknown]
  - Back pain [Unknown]

NARRATIVE: CASE EVENT DATE: 20240112
